FAERS Safety Report 22016731 (Version 6)
Quarter: 2024Q2

REPORT INFORMATION
  Report Type: Spontaneous
  Country: US (occurrence: US)
  Receive Date: 20230221
  Receipt Date: 20240522
  Transmission Date: 20240715
  Serious: No
  Sender: FDA-Public Use
  Company Number: US-PFIZER INC-PV202300031807

PATIENT
  Age: 85 Year
  Sex: Female

DRUGS (2)
  1. IBRANCE [Suspect]
     Active Substance: PALBOCICLIB
     Dosage: 100 MG, CYCLIC (TAKE 1 DAILY FOR 21 DAYS 7 DAYS OFF)
  2. IBRANCE [Suspect]
     Active Substance: PALBOCICLIB
     Dosage: 100 MG, CYCLIC (14 DAYS ON, 7 DAYS OFF)
     Route: 048

REACTIONS (2)
  - Malaise [Unknown]
  - Amnesia [Unknown]
